FAERS Safety Report 22152954 (Version 1)
Quarter: 2023Q1

REPORT INFORMATION
  Report Type: Other
  Country: US (occurrence: None)
  Receive Date: 20230329
  Receipt Date: 20230329
  Transmission Date: 20230418
  Serious: Yes (Hospitalization)
  Sender: FDA-Public Use
  Company Number: US-ROCHE-3314566

PATIENT
  Age: 53 Year
  Sex: Female
  Weight: 61.290 kg

DRUGS (11)
  1. OCREVUS [Suspect]
     Active Substance: OCRELIZUMAB
     Indication: Relapsing multiple sclerosis
     Dosage: ONGOING: YES
     Route: 042
  2. BACLOFEN [Concomitant]
     Active Substance: BACLOFEN
  3. GABAPENTIN [Concomitant]
     Active Substance: GABAPENTIN
  4. TOPAMAX [Concomitant]
     Active Substance: TOPIRAMATE
  5. ELAVIL [Concomitant]
     Active Substance: AMITRIPTYLINE HYDROCHLORIDE
  6. INDERAL [Concomitant]
     Active Substance: PROPRANOLOL HYDROCHLORIDE
  7. NEURONTIN [Concomitant]
     Active Substance: GABAPENTIN
  8. AJOVY [Concomitant]
     Active Substance: FREMANEZUMAB-VFRM
  9. EMGALITY [Concomitant]
     Active Substance: GALCANEZUMAB-GNLM
  10. SUMATRIPTAN [Concomitant]
     Active Substance: SUMATRIPTAN
  11. AMERGE [Concomitant]
     Active Substance: NARATRIPTAN HYDROCHLORIDE

REACTIONS (3)
  - COVID-19 [Recovered/Resolved]
  - White blood cell count increased [Unknown]
  - Lymphocyte count increased [Unknown]

NARRATIVE: CASE EVENT DATE: 20230301
